FAERS Safety Report 12167985 (Version 2)
Quarter: 2016Q1

REPORT INFORMATION
  Report Type: Spontaneous
  Country: DE (occurrence: DE)
  Receive Date: 20160310
  Receipt Date: 20160310
  Transmission Date: 20160526
  Serious: Yes (Other)
  Sender: FDA-Public Use
  Company Number: DE-WATSON-2016-05197

PATIENT
  Age: 45 Year
  Sex: Female
  Weight: 59 kg

DRUGS (1)
  1. LEVOFLOXACIN (UNKNOWN) [Suspect]
     Active Substance: LEVOFLOXACIN
     Indication: BACTERIAL INFECTION
     Dosage: 500 MG, DAILY
     Route: 048
     Dates: start: 20160206

REACTIONS (8)
  - Breast pain [Recovering/Resolving]
  - Arrhythmia [Recovering/Resolving]
  - Restlessness [Recovering/Resolving]
  - Dizziness [Recovering/Resolving]
  - Pain in extremity [Recovering/Resolving]
  - Breast oedema [Recovering/Resolving]
  - Heart rate increased [Recovering/Resolving]
  - Ear discomfort [Recovering/Resolving]

NARRATIVE: CASE EVENT DATE: 20160207
